FAERS Safety Report 10764637 (Version 1)
Quarter: 2015Q1

REPORT INFORMATION
  Report Type: Spontaneous
  Country: US (occurrence: US)
  Receive Date: 20150205
  Receipt Date: 20150205
  Transmission Date: 20150721
  Serious: Yes (Death, Other)
  Sender: FDA-Public Use
  Company Number: US-CIPLA LTD.-2015US00848

PATIENT

DRUGS (2)
  1. TOPOTECAN [Suspect]
     Active Substance: TOPOTECAN\TOPOTECAN HYDROCHLORIDE
     Indication: CERVIX CARCINOMA
     Dosage: 0.6 MG/M2 ON DAYS 1 TO 5 FOR ONE CYCLE
     Route: 042
  2. VELIPARIB [Suspect]
     Active Substance: VELIPARIB
     Indication: CERVIX CARCINOMA
     Dosage: 10 MG ON DAYS 1 TO 5 FOR ONE CYCLE
     Route: 048

REACTIONS (2)
  - Dyspnoea [Unknown]
  - Death [Fatal]
